FAERS Safety Report 20661046 (Version 1)
Quarter: 2022Q1

REPORT INFORMATION
  Report Type: Spontaneous
  Country: US (occurrence: US)
  Receive Date: 20220331
  Receipt Date: 20220331
  Transmission Date: 20220423
  Serious: No
  Sender: FDA-Public Use
  Company Number: US-AMGEN-USASP2022055936

PATIENT
  Sex: Female

DRUGS (2)
  1. OTEZLA [Suspect]
     Active Substance: APREMILAST
     Indication: Psoriasis
     Dosage: UNK
     Route: 065
     Dates: start: 2020
  2. COVID-19 VACCINE [Concomitant]

REACTIONS (4)
  - Anaemia [Recovered/Resolved]
  - Heavy menstrual bleeding [Recovered/Resolved]
  - Pyrexia [Unknown]
  - Asthenia [Unknown]
